FAERS Safety Report 9115742 (Version 1)
Quarter: 2013Q1

REPORT INFORMATION
  Report Type: Spontaneous
  Country: GB (occurrence: None)
  Receive Date: 20130129
  Receipt Date: 20130129
  Transmission Date: 20140127
  Serious: Yes (Hospitalization)
  Sender: FDA-Public Use
  Company Number: FK201300099

PATIENT
  Age: 73 Year
  Sex: Male

DRUGS (3)
  1. PIPERACILLIN + TAZOBACTAM [Suspect]
     Indication: PRODUCT USED FOR UNKNOWN INDICATION
     Dosage: 4.5 GM,  3 IN 1 D,  INTRAVENOUS  (NOT OTHERWISE SPECIFIED)?03/16/2011  -  03/17/2011
     Route: 042
     Dates: start: 20110316, end: 20110317
  2. CO-AMOXICLAV [Suspect]
     Indication: STREPTOCOCCAL SEPSIS
     Route: 048
  3. METRONIDAZOLE (METRONIDAZOLE) [Concomitant]

REACTIONS (4)
  - Diarrhoea [None]
  - Vomiting [None]
  - Clostridium difficile infection [None]
  - Norovirus test positive [None]
